FAERS Safety Report 24554823 (Version 4)
Quarter: 2025Q1

REPORT INFORMATION
  Report Type: Report from Study
  Country: US (occurrence: US)
  Receive Date: 20241028
  Receipt Date: 20250324
  Transmission Date: 20250409
  Serious: No
  Sender: JOHNSON AND JOHNSON
  Company Number: US-JNJFOC-20241041496

PATIENT
  Age: 32 Year
  Sex: Male

DRUGS (3)
  1. TREMFYA [Suspect]
     Active Substance: GUSELKUMAB
     Indication: Psoriasis
     Route: 058
  2. TREMFYA [Suspect]
     Active Substance: GUSELKUMAB
     Indication: Psoriatic arthropathy
  3. ADVIL [Concomitant]
     Active Substance: IBUPROFEN

REACTIONS (5)
  - Device leakage [Unknown]
  - Product dose omission issue [Unknown]
  - Injection site haemorrhage [Unknown]
  - Psoriasis [Unknown]
  - Pain [Unknown]

NARRATIVE: CASE EVENT DATE: 20241004
